FAERS Safety Report 8991167 (Version 1)
Quarter: 2012Q4

REPORT INFORMATION
  Report Type: 
  Country: MX (occurrence: MX)
  Receive Date: 20121231
  Receipt Date: 20121231
  Transmission Date: 20130627
  Serious: Yes (Other)
  Sender: FDA-Public Use
  Company Number: MX-009507513-1212MEX009536

PATIENT
  Age: 38 Year
  Sex: Female

DRUGS (1)
  1. IMPLANON [Suspect]
     Indication: CONTRACEPTION
     Dosage: UNK
     Route: 059
     Dates: start: 201202

REACTIONS (3)
  - Breast cancer [Not Recovered/Not Resolved]
  - Lymphoedema [Not Recovered/Not Resolved]
  - Medical device complication [Not Recovered/Not Resolved]
